FAERS Safety Report 4601041-1 (Version None)
Quarter: 2005Q1

REPORT INFORMATION
  Report Type: 
  Country: None (occurrence: None)
  Receive Date: 20050307
  Receipt Date: 20050307
  Transmission Date: 20050727
  Serious: Yes (Other)
  Sender: FDA-Public Use
  Company Number: None

PATIENT
  Sex: Female
  Weight: 136.0791 kg

DRUGS (3)
  1. PAXIL CR [Suspect]
     Indication: ANXIETY
     Dosage: 37.5      1 PER DAY   ORAL
     Route: 048
     Dates: start: 20030715, end: 20050305
  2. PAXIL CR [Suspect]
     Indication: DEPRESSION
     Dosage: 37.5      1 PER DAY   ORAL
     Route: 048
     Dates: start: 20030715, end: 20050305
  3. PAXIL CR [Suspect]
     Indication: PANIC DISORDER
     Dosage: 37.5      1 PER DAY   ORAL
     Route: 048
     Dates: start: 20030715, end: 20050305

REACTIONS (2)
  - DRUG WITHDRAWAL SYNDROME [None]
  - PHARMACEUTICAL PRODUCT COMPLAINT [None]
